FAERS Safety Report 8412906-7 (Version None)
Quarter: 2012Q2

REPORT INFORMATION
  Report Type: 
  Country: None (occurrence: None)
  Receive Date: 20120605
  Receipt Date: 20120525
  Transmission Date: 20120825
  Serious: No
  Sender: FDA-Public Use
  Company Number: US-AMGEN-USASP2012033094

PATIENT
  Age: 59 Year
  Sex: Male

DRUGS (3)
  1. METHOTREXATE [Concomitant]
     Dosage: UNK MG, UNK
  2. FOLIC ACID [Concomitant]
     Dosage: UNK MG, UNK
  3. ENBREL [Suspect]
     Indication: RHEUMATOID ARTHRITIS
     Dosage: 50 MG, QWK
     Dates: start: 20120301

REACTIONS (1)
  - PAIN IN EXTREMITY [None]
